FAERS Safety Report 9402836 (Version 1)
Quarter: 2013Q3

REPORT INFORMATION
  Report Type: Spontaneous
  Country: US (occurrence: None)
  Receive Date: 20130715
  Receipt Date: 20130715
  Transmission Date: 20140515
  Serious: Yes (Hospitalization)
  Sender: FDA-Public Use
  Company Number: None

PATIENT
  Age: 45 Year
  Sex: Female
  Weight: 78.6 kg

DRUGS (1)
  1. OVCON 35 [Suspect]
     Indication: OVULATION PAIN
     Dosage: 1 TABLET
     Route: 048

REACTIONS (3)
  - Pulmonary embolism [None]
  - Thrombophlebitis superficial [None]
  - Deep vein thrombosis [None]
